FAERS Safety Report 8152711-2 (Version None)
Quarter: 2012Q1

REPORT INFORMATION
  Report Type: 
  Country: None (occurrence: None)
  Receive Date: 20120216
  Receipt Date: 20120216
  Transmission Date: 20120608
  Serious: Yes (Other)
  Sender: FDA-Public Use
  Company Number: None

PATIENT
  Age: 40 Year
  Sex: Male

DRUGS (5)
  1. ZOLPIDEM [Concomitant]
  2. MORPHINE [Concomitant]
  3. REVLIMID [Suspect]
     Indication: MULTIPLE MYELOMA
     Dosage: REVLIMID 25 MG DAILY X21D/28D ORALLY 1 CYCLE
     Route: 048
  4. OMEPRAZOLE [Concomitant]
  5. ALPRAZOLAM [Concomitant]

REACTIONS (4)
  - LUNG DISORDER [None]
  - SUPRAVENTRICULAR TACHYCARDIA [None]
  - CARDIAC DISORDER [None]
  - SYNCOPE [None]
